FAERS Safety Report 13435262 (Version 3)
Quarter: 2017Q2

REPORT INFORMATION
  Report Type: Spontaneous
  Country: US (occurrence: US)
  Receive Date: 20170413
  Receipt Date: 20170623
  Transmission Date: 20170830
  Serious: No
  Sender: FDA-Public Use
  Company Number: US-GLAXOSMITHKLINE-US2017GSK052187

PATIENT
  Sex: Male

DRUGS (1)
  1. VENTOLIN HFA [Suspect]
     Active Substance: ALBUTEROL SULFATE
     Indication: PRODUCT USED FOR UNKNOWN INDICATION
     Dosage: UNK, U

REACTIONS (5)
  - Underdose [Unknown]
  - Product quality issue [Unknown]
  - Drug dose omission [Not Recovered/Not Resolved]
  - Product use issue [Unknown]
  - Device leakage [Unknown]

NARRATIVE: CASE EVENT DATE: 201704
